FAERS Safety Report 7108086-0 (Version None)
Quarter: 2010Q4

REPORT INFORMATION
  Report Type: 
  Country: None (occurrence: None)
  Receive Date: 20101117
  Receipt Date: 20101111
  Transmission Date: 20110411
  Serious: Yes (Hospitalization)
  Sender: FDA-Public Use
  Company Number: CHPA2010US17610

PATIENT
  Sex: Female

DRUGS (1)
  1. THERAFLU COLD AND COUGH (NCH) [Suspect]
     Indication: INFLUENZA
     Dosage: UNK, UNK
     Route: 048

REACTIONS (2)
  - OFF LABEL USE [None]
  - VOMITING [None]
